FAERS Safety Report 11333514 (Version 1)
Quarter: 2015Q3

REPORT INFORMATION
  Report Type: Spontaneous
  Country: US (occurrence: US)
  Receive Date: 20150803
  Receipt Date: 20150803
  Transmission Date: 20151125
  Serious: No
  Sender: FDA-Public Use
  Company Number: US-ELI_LILLY_AND_COMPANY-US200708002923

PATIENT
  Age: 49 Year
  Sex: Male

DRUGS (10)
  1. ZYPREXA [Suspect]
     Active Substance: OLANZAPINE
     Dosage: 5.25 MG, DAILY (1/D)
     Dates: end: 20080319
  2. LOVASTATIN. [Concomitant]
     Active Substance: LOVASTATIN
  3. PROPANOLOL [Concomitant]
     Active Substance: PROPRANOLOL HYDROCHLORIDE
     Dosage: 40 MG, UNK
  4. KLONOPIN [Concomitant]
     Active Substance: CLONAZEPAM
  5. ZYPREXA [Suspect]
     Active Substance: OLANZAPINE
     Dosage: 9.375 MG, UNK
     Dates: start: 200708
  6. ZYPREXA [Suspect]
     Active Substance: OLANZAPINE
     Dosage: 6.875 MG, UNK
  7. ZYPREXA [Suspect]
     Active Substance: OLANZAPINE
     Indication: ANGER
     Dosage: 2.5 MG, 4/D
     Route: 048
     Dates: start: 200702
  8. ZYPREXA [Suspect]
     Active Substance: OLANZAPINE
     Dosage: 0.625 MG, 2/W
  9. PAXIL [Concomitant]
     Active Substance: PAROXETINE HYDROCHLORIDE
  10. HALCION [Concomitant]
     Active Substance: TRIAZOLAM
     Indication: INSOMNIA

REACTIONS (17)
  - Autonomic neuropathy [Unknown]
  - Dependence [Not Recovered/Not Resolved]
  - Erectile dysfunction [Unknown]
  - Anxiety [Recovering/Resolving]
  - General physical health deterioration [Unknown]
  - Panic attack [Unknown]
  - Akathisia [Recovering/Resolving]
  - Respiration abnormal [Unknown]
  - Suicidal ideation [Not Recovered/Not Resolved]
  - Violence-related symptom [Unknown]
  - Restlessness [Unknown]
  - Insomnia [Not Recovered/Not Resolved]
  - Parkinsonism [Unknown]
  - Withdrawal syndrome [Not Recovered/Not Resolved]
  - Loss of dreaming [Unknown]
  - Dry mouth [Not Recovered/Not Resolved]
  - Heart rate increased [Unknown]

NARRATIVE: CASE EVENT DATE: 200705
